FAERS Safety Report 9596749 (Version 3)
Quarter: 2013Q4

REPORT INFORMATION
  Report Type: Report from Study
  Country: US (occurrence: US)
  Receive Date: 20131004
  Receipt Date: 20131014
  Transmission Date: 20140711
  Serious: Yes (Hospitalization)
  Sender: FDA-Public Use
  Company Number: US-DENDREON CORPORATION-2013PROUSA02853

PATIENT
  Age: 60 Year
  Sex: Male
  Weight: 82.54 kg

DRUGS (14)
  1. SIPULEUCEL-T [Suspect]
     Indication: PROSTATE CANCER METASTATIC
     Dosage: 250 ML, SINGLE
     Route: 042
     Dates: start: 20130415, end: 20130415
  2. SIPULEUCEL-T [Suspect]
     Dosage: 250 ML, SINGLE
     Route: 042
     Dates: start: 20130429, end: 20130429
  3. SIPULEUCEL-T [Suspect]
     Dosage: 250 ML, SINGLE
     Route: 042
     Dates: start: 20130513, end: 20130513
  4. FEXOFENADINE HYDROCHLORIDE [Concomitant]
     Indication: HYPERSENSITIVITY
     Dosage: 60 MG, UNK
  5. CALCIUM +D [Concomitant]
     Indication: SUPPLEMENTATION THERAPY
  6. PHENYTOIN SODIUM [Concomitant]
     Indication: CONVULSION
     Dosage: 300 MG, HS
     Dates: start: 1993
  7. FLUTICASONE PROPIONATE [Concomitant]
     Indication: ASTHMA
     Dosage: 1 UNK, UNK
  8. ALENDRONIC ACID [Concomitant]
     Indication: OSTEOPENIA
     Dosage: 170 MG, UNK
  9. NEURONTIN [Concomitant]
     Indication: HOT FLUSH
     Dosage: 100 MG, UNK
  10. LUPRON [Concomitant]
     Indication: PROSTATE CANCER
     Dosage: 30 MG, UNK
  11. MULTIVITAMIN [Concomitant]
     Indication: SUPPLEMENTATION THERAPY
     Dosage: 1 UNK, UNK
  12. PRAVASTATIN [Concomitant]
     Indication: PROPHYLAXIS
     Dosage: 10 MG, HS
     Dates: start: 201301
  13. ASPIRIN [Concomitant]
     Indication: PROPHYLAXIS
     Dosage: 81 MG, UNK
  14. DILANTIN [Concomitant]
     Dosage: 300 MG, QD
     Dates: start: 1993

REACTIONS (1)
  - Subdural haematoma [Recovered/Resolved]
